FAERS Safety Report 9332888 (Version 1)
Quarter: 2013Q2

REPORT INFORMATION
  Report Type: Spontaneous
  Country: FR (occurrence: FR)
  Receive Date: 20130606
  Receipt Date: 20130606
  Transmission Date: 20140414
  Serious: Yes (Other)
  Sender: FDA-Public Use
  Company Number: FR-009507513-1211FRA007996

PATIENT
  Age: 30 Year
  Sex: Female

DRUGS (1)
  1. IMPLANON [Suspect]
     Indication: CONTRACEPTION
     Dosage: UNK
     Route: 030
     Dates: start: 20090916, end: 20121129

REACTIONS (6)
  - Device dislocation [Unknown]
  - Device deployment issue [Unknown]
  - Incorrect drug administration duration [Unknown]
  - Incorrect route of drug administration [Unknown]
  - Scar [Unknown]
  - Medical device complication [Unknown]
